FAERS Safety Report 4456256-2 (Version None)
Quarter: 2004Q3

REPORT INFORMATION
  Report Type: 
  Country: None (occurrence: None)
  Receive Date: 20040920
  Receipt Date: 20040907
  Transmission Date: 20050211
  Serious: Yes (Other)
  Sender: FDA-Public Use
  Company Number: 2004064015

PATIENT
  Sex: Female
  Weight: 56.6996 kg

DRUGS (3)
  1. LIPITOR [Suspect]
     Indication: BLOOD CHOLESTEROL
     Dosage: 10 MG (10 MG, 1 IN 1 D), ORAL
     Route: 048
     Dates: start: 20030101
  2. FOSINOPRIL SODIUM [Concomitant]
  3. ACETAMINOPHEN [Concomitant]

REACTIONS (3)
  - BLOOD CHOLESTEROL INCREASED [None]
  - INCREASED TENDENCY TO BRUISE [None]
  - MUSCLE CRAMP [None]
